FAERS Safety Report 19455239 (Version 1)
Quarter: 2021Q2

REPORT INFORMATION
  Report Type: Spontaneous
  Country: US (occurrence: US)
  Receive Date: 20210623
  Receipt Date: 20210623
  Transmission Date: 20210717
  Serious: No
  Sender: FDA-Public Use
  Company Number: US-009507513-2106USA003911

PATIENT
  Age: 37 Year

DRUGS (4)
  1. NORLYDA [Concomitant]
     Active Substance: NORETHINDRONE
  2. PROCHLORPERAZ [Concomitant]
     Active Substance: PROCHLORPERAZINE MALEATE
  3. INTRON A [Suspect]
     Active Substance: INTERFERON ALFA-2B
     Indication: MYELOID LEUKAEMIA
     Dosage: 3000000 INTERNATIONAL UNIT, TIW
     Route: 030
     Dates: start: 20210503
  4. ONDANSETRON [Concomitant]
     Active Substance: ONDANSETRON

REACTIONS (4)
  - Headache [Unknown]
  - Vomiting [Unknown]
  - Product use in unapproved indication [Unknown]
  - Diarrhoea [Unknown]

NARRATIVE: CASE EVENT DATE: 2021
